FAERS Safety Report 4366275-2 (Version None)
Quarter: 2004Q2

REPORT INFORMATION
  Report Type: 
  Country: None (occurrence: None)
  Receive Date: 20040524
  Receipt Date: 20040510
  Transmission Date: 20050107
  Serious: Yes (Other)
  Sender: FDA-Public Use
  Company Number: 206410

PATIENT
  Age: 72 Year
  Sex: Female

DRUGS (6)
  1. MABTHERA (RITUXIMAB) CONC FOR SOLUTION FOR INFUSION [Suspect]
     Indication: NON-HODGKIN'S LYMPHOMA
     Dosage: 800 MG, 1/WEEK, INTRAVENOUS
     Route: 042
     Dates: start: 19980328, end: 19990818
  2. CYCLOPHOSPHAMIDE [Suspect]
     Indication: NON-HODGKIN'S LYMPHOMA
     Dosage: INTRAVENOUS
     Route: 042
     Dates: start: 19970101, end: 19980101
  3. DOXORUBICIN HYDROCHLORIDE [Suspect]
     Indication: NON-HODGKIN'S LYMPHOMA
     Dosage: INTRAVENOUS
     Route: 042
     Dates: start: 19970101, end: 19980101
  4. VINCRISTINE [Suspect]
     Indication: NON-HODGKIN'S LYMPHOMA
     Dosage: INTRAVENOUS
     Route: 042
     Dates: start: 19970101, end: 19980101
  5. PREDNISONE TAB [Suspect]
     Indication: NON-HODGKIN'S LYMPHOMA
     Dosage: ORAL
     Route: 048
     Dates: start: 19970101, end: 19980101
  6. BEXXAR (TOSITUMOMAB) [Suspect]
     Indication: NON-HODGKIN'S LYMPHOMA
     Dates: start: 20010201

REACTIONS (2)
  - MYELODYSPLASTIC SYNDROME [None]
  - NEOPLASM [None]
